FAERS Safety Report 7256208-3 (Version None)
Quarter: 2011Q1

REPORT INFORMATION
  Report Type: 
  Country: None (occurrence: None)
  Receive Date: 20110129
  Receipt Date: 20100615
  Transmission Date: 20110831
  Serious: No
  Sender: FDA-Public Use
  Company Number: US-ABBOTT-10P-163-0645959-00

PATIENT
  Sex: Female
  Weight: 104.42 kg

DRUGS (5)
  1. HUMIRA [Suspect]
     Indication: PSORIASIS
     Dates: start: 20100428
  2. UNKNOWN PAIN MEDS [Concomitant]
     Indication: INTERVERTEBRAL DISC PROTRUSION
  3. NEXIUM [Concomitant]
     Indication: GASTROOESOPHAGEAL REFLUX DISEASE
  4. PLENDIL [Concomitant]
     Indication: HYPERTENSION
  5. DIAZEPAM [Concomitant]
     Indication: NERVOUSNESS

REACTIONS (7)
  - NAUSEA [None]
  - NERVOUSNESS [None]
  - FEELING JITTERY [None]
  - FATIGUE [None]
  - TREMOR [None]
  - HEADACHE [None]
  - DEVICE MALFUNCTION [None]
